FAERS Safety Report 6343675-2 (Version None)
Quarter: 2009Q3

REPORT INFORMATION
  Report Type: 
  Country: None (occurrence: None)
  Receive Date: 20090908
  Receipt Date: 20090827
  Transmission Date: 20100115
  Serious: Yes (Other)
  Sender: FDA-Public Use
  Company Number: JP-ASTRAZENECA-2009SE11027

PATIENT
  Age: 65 Year
  Sex: Female
  Weight: 31.3 kg

DRUGS (11)
  1. SEROQUEL [Suspect]
     Indication: HALLUCINATION
     Route: 048
     Dates: start: 20060201, end: 20090801
  2. SEROQUEL [Suspect]
     Indication: DELUSION
     Route: 048
     Dates: start: 20060201, end: 20090801
  3. SEROQUEL [Suspect]
     Indication: INSOMNIA
     Route: 048
     Dates: start: 20060201, end: 20090801
  4. PALOLACTIN [Concomitant]
     Route: 048
  5. SYMMETREL [Concomitant]
     Route: 048
  6. CARCOPA [Concomitant]
     Route: 048
  7. PRAMIPEXOLE DIHYDROCHLORIDE [Concomitant]
     Route: 048
  8. UBRETID [Concomitant]
     Route: 048
  9. SILECE [Concomitant]
     Route: 048
  10. MUCOTRON [Concomitant]
     Route: 048
  11. GASMOTIN [Concomitant]
     Route: 048

REACTIONS (2)
  - ALTERED STATE OF CONSCIOUSNESS [None]
  - HYPERGLYCAEMIA [None]
